FAERS Safety Report 6285505-3 (Version None)
Quarter: 2009Q3

REPORT INFORMATION
  Report Type: 
  Country: None (occurrence: None)
  Receive Date: 20090727
  Receipt Date: 20090715
  Transmission Date: 20100115
  Serious: Yes (Hospitalization)
  Sender: FDA-Public Use
  Company Number: PHHY2009CA28547

PATIENT
  Sex: Male

DRUGS (6)
  1. CLOZARIL [Suspect]
     Indication: SCHIZOPHRENIA
     Dosage: UNK
     Dates: start: 19971222
  2. VENTOLIN [Concomitant]
     Dosage: UNK
  3. FLONASE [Concomitant]
  4. SPIRIVA [Concomitant]
  5. DALMANE [Concomitant]
     Dosage: 15 MG, QHS
  6. ARTANE [Concomitant]
     Dosage: 5 MG QHS AND 2 MG BID

REACTIONS (9)
  - BODY TEMPERATURE INCREASED [None]
  - CHILLS [None]
  - DEHYDRATION [None]
  - DIZZINESS [None]
  - FALL [None]
  - NEUTROPHIL COUNT INCREASED [None]
  - PNEUMONIA [None]
  - RENAL DISORDER [None]
  - WHITE BLOOD CELL COUNT INCREASED [None]
